FAERS Safety Report 9138839 (Version 2)
Quarter: 2013Q3

REPORT INFORMATION
  Report Type: Spontaneous
  Country: US (occurrence: US)
  Receive Date: 20130305
  Receipt Date: 20130809
  Transmission Date: 20140515
  Serious: No
  Sender: FDA-Public Use
  Company Number: US-PFIZER INC-2013071683

PATIENT
  Age: 63 Year
  Sex: Female
  Weight: 98.1 kg

DRUGS (8)
  1. ENBREL [Suspect]
     Dosage: UNK
  2. METHOTREXATE SODIUM [Suspect]
     Dosage: UNK
  3. SULFASALAZINE [Suspect]
     Dosage: UNK
  4. HUMIRA [Suspect]
     Dosage: UNK
  5. SIMPONI [Suspect]
     Dosage: UNK
  6. ACTEMRA [Suspect]
     Dosage: UNK
  7. ORENCIA [Suspect]
     Dosage: UNK
  8. RITUXAN [Suspect]
     Dosage: UNK

REACTIONS (2)
  - Drug hypersensitivity [Unknown]
  - Drug ineffective [Unknown]
